FAERS Safety Report 20074610 (Version 2)
Quarter: 2022Q2

REPORT INFORMATION
  Report Type: Spontaneous
  Country: IN (occurrence: IN)
  Receive Date: 20211116
  Receipt Date: 20220502
  Transmission Date: 20220720
  Serious: Yes (Death, Hospitalization)
  Sender: FDA-Public Use
  Company Number: IN-PFIZER INC-202101326181

PATIENT
  Age: 52 Year
  Sex: Male

DRUGS (1)
  1. LORLATINIB [Suspect]
     Active Substance: LORLATINIB
     Indication: Lung adenocarcinoma
     Dosage: 100 MG, 1X/DAY
     Route: 048
     Dates: start: 20211005, end: 20211129

REACTIONS (5)
  - Neoplasm progression [Fatal]
  - Dyspnoea [Unknown]
  - Pain [Unknown]
  - Respiratory symptom [Unknown]
  - Spinal pain [Unknown]
